FAERS Safety Report 17166247 (Version 2)
Quarter: 2020Q3

REPORT INFORMATION
  Report Type: Spontaneous
  Country: SE (occurrence: SE)
  Receive Date: 20191217
  Receipt Date: 20200807
  Transmission Date: 20201102
  Serious: Yes (Disabling)
  Sender: FDA-Public Use
  Company Number: NVSC2019SE065124

PATIENT
  Age: 3 Year
  Sex: Male

DRUGS (1)
  1. ONDANSETRON [Suspect]
     Active Substance: ONDANSETRON
     Indication: FOETAL EXPOSURE DURING PREGNANCY
     Dosage: MOTHER DOSE:12 MG, QD (4 MG 3 GGR DAGLIGEN EL VID BEHOV)
     Route: 064
     Dates: start: 20101101, end: 20110201

REACTIONS (3)
  - Foetal exposure during pregnancy [Unknown]
  - Speech disorder [Not Recovered/Not Resolved]
  - Autism spectrum disorder [Not Recovered/Not Resolved]

NARRATIVE: CASE EVENT DATE: 20101101
